FAERS Safety Report 25424827 (Version 2)
Quarter: 2025Q2

REPORT INFORMATION
  Report Type: Spontaneous
  Country: BG (occurrence: BG)
  Receive Date: 20250611
  Receipt Date: 20250613
  Transmission Date: 20250717
  Serious: Yes (Death, Hospitalization)
  Sender: MERCK SHARP & DOHME LLC
  Company Number: BG-009507513-2294024

PATIENT
  Age: 77 Year
  Sex: Female

DRUGS (1)
  1. PEMBROLIZUMAB [Suspect]
     Active Substance: PEMBROLIZUMAB
     Indication: Malignant melanoma

REACTIONS (4)
  - Cholestasis [Fatal]
  - Drug-induced liver injury [Fatal]
  - Condition aggravated [Fatal]
  - Laboratory test abnormal [Fatal]

NARRATIVE: CASE EVENT DATE: 20250101
